FAERS Safety Report 7211685-9 (Version None)
Quarter: 2011Q1

REPORT INFORMATION
  Report Type: 
  Country: None (occurrence: None)
  Receive Date: 20110105
  Receipt Date: 20101221
  Transmission Date: 20110831
  Serious: Yes (Hospitalization)
  Sender: FDA-Public Use
  Company Number: FR-BAYER-2011-000520

PATIENT
  Sex: Male

DRUGS (8)
  1. KARDEGIC [Suspect]
     Dosage: 160 MG, QD
     Route: 048
  2. TAHOR [Concomitant]
     Dosage: UNK
     Dates: end: 20100823
  3. NAPROXEN SODIUM [Suspect]
     Dosage: 550 MG, BID
     Route: 048
  4. CLOPIDOGREL [Suspect]
     Dosage: 75 MG, QD
     Route: 048
     Dates: end: 20100823
  5. MICARDIS [Concomitant]
     Dosage: UNK
  6. METFORMIN HCL [Concomitant]
     Dosage: UNK
     Dates: end: 20100823
  7. NAPROXEN SODIUM [Suspect]
     Indication: OSTEOARTHRITIS
     Dosage: 550 MG, BID
     Dates: end: 20100822
  8. LAMALINE [CAFFEINE,PAPAVER SOMNIFERUM LATEX,PARACETAMOL] [Concomitant]
     Dosage: UNK

REACTIONS (8)
  - CHEST PAIN [None]
  - FAECES DISCOLOURED [None]
  - PALLOR [None]
  - GASTRIC ULCER HAEMORRHAGE [None]
  - ABDOMINAL PAIN UPPER [None]
  - DYSPNOEA EXERTIONAL [None]
  - MELAENA [None]
  - ANAEMIA [None]
